FAERS Safety Report 25525322 (Version 1)
Quarter: 2025Q3

REPORT INFORMATION
  Report Type: Spontaneous
  Country: US (occurrence: US)
  Receive Date: 20250707
  Receipt Date: 20250707
  Transmission Date: 20251020
  Serious: Yes (Hospitalization, Other)
  Sender: SANOFI AVENTIS
  Company Number: US-SA-2025SA189049

PATIENT
  Age: 58 Year
  Sex: Female

DRUGS (25)
  1. DUPIXENT [Suspect]
     Active Substance: DUPILUMAB
     Indication: Asthma
     Route: 058
     Dates: start: 20221024
  2. FUROSEMIDE [Concomitant]
     Active Substance: FUROSEMIDE
  3. ENOXAPARIN [Concomitant]
     Active Substance: ENOXAPARIN
  4. AZITHROMYCIN [Concomitant]
     Active Substance: AZITHROMYCIN
  5. DOXYCYCLINE [Concomitant]
     Active Substance: DOXYCYCLINE
  6. WARFARIN [Concomitant]
     Active Substance: WARFARIN
  7. HYDROMORPHONE [Concomitant]
     Active Substance: HYDROMORPHONE
  8. LOSARTAN [Concomitant]
     Active Substance: LOSARTAN
  9. JARDIANCE [Concomitant]
     Active Substance: EMPAGLIFLOZIN
  10. ATORVASTATIN [Concomitant]
     Active Substance: ATORVASTATIN
  11. AMOXICILLIN [Concomitant]
     Active Substance: AMOXICILLIN
  12. DULERA [Concomitant]
     Active Substance: FORMOTEROL FUMARATE DIHYDRATE\MOMETASONE FUROATE
  13. MONTELUKAST [Concomitant]
     Active Substance: MONTELUKAST
  14. ENTRESTO [Concomitant]
     Active Substance: SACUBITRIL\VALSARTAN
  15. SPIRONOLACTONE [Concomitant]
     Active Substance: SPIRONOLACTONE
  16. FLUTICASONE [Concomitant]
     Active Substance: FLUTICASONE
  17. MELOXICAM [Concomitant]
     Active Substance: MELOXICAM
  18. TIKOSYN [Concomitant]
     Active Substance: DOFETILIDE
  19. PANTOPRAZOLE [Concomitant]
     Active Substance: PANTOPRAZOLE
  20. METHOCARBAMOL [Concomitant]
     Active Substance: METHOCARBAMOL
  21. DIGOXIN [Concomitant]
     Active Substance: DIGOXIN
  22. PREDNISONE [Concomitant]
     Active Substance: PREDNISONE
  23. POTASSIUM [Concomitant]
     Active Substance: POTASSIUM
  24. METOPROLOL [Concomitant]
     Active Substance: METOPROLOL
  25. FUROSEMIDE [Concomitant]
     Active Substance: FUROSEMIDE

REACTIONS (1)
  - Atrial fibrillation [Unknown]

NARRATIVE: CASE EVENT DATE: 20250702
